FAERS Safety Report 4941685-0 (Version None)
Quarter: 2006Q1

REPORT INFORMATION
  Report Type: 
  Country: None (occurrence: None)
  Receive Date: 20060313
  Receipt Date: 20050621
  Transmission Date: 20060701
  Serious: Yes (Hospitalization, Disabling)
  Sender: FDA-Public Use
  Company Number: US-ROCHE-408618

PATIENT
  Age: 15 Year
  Sex: Female
  Weight: 55.8 kg

DRUGS (5)
  1. ACCUTANE [Suspect]
     Dosage: STRENGTH: 20 MG.
     Route: 048
     Dates: start: 20020105, end: 20020130
  2. ACCUTANE [Suspect]
     Dosage: STRENGTH: 20 MG AND 10 MG.
     Route: 048
     Dates: start: 20020130, end: 20020309
  3. ACCUTANE [Suspect]
     Route: 048
     Dates: start: 20020309, end: 20020523
  4. ACCUTANE [Suspect]
     Dosage: CAP STRENGTH: 40 MG AND 10 MG
     Route: 048
     Dates: start: 20020523, end: 20020714
  5. VALTREX [Concomitant]
     Route: 048
     Dates: start: 20020701, end: 20020703

REACTIONS (37)
  - ANHEDONIA [None]
  - ANXIETY [None]
  - ARTHRALGIA [None]
  - ARTHRITIS [None]
  - AUTOIMMUNE HEPATITIS [None]
  - CALCINOSIS [None]
  - CHEST PAIN [None]
  - DIZZINESS [None]
  - DRY EYE [None]
  - DRY SKIN [None]
  - EUSTACHIAN TUBE DYSFUNCTION [None]
  - GASTROINTESTINAL DISORDER [None]
  - HEADACHE [None]
  - HEPATOCELLULAR DAMAGE [None]
  - HEPATOMEGALY [None]
  - INJURY [None]
  - LIGAMENT CALCIFICATION [None]
  - LIP DRY [None]
  - LIVER DISORDER [None]
  - METRORRHAGIA [None]
  - MYALGIA [None]
  - MYOCLONUS [None]
  - NECK PAIN [None]
  - OTITIS MEDIA [None]
  - PAIN [None]
  - PAIN IN EXTREMITY [None]
  - PARALYSIS [None]
  - PHARYNGITIS [None]
  - PROTEIN TOTAL INCREASED [None]
  - RECTAL HAEMORRHAGE [None]
  - ROAD TRAFFIC ACCIDENT [None]
  - SHOULDER PAIN [None]
  - SLEEP DISORDER [None]
  - SOMNOLENCE [None]
  - TENDON CALCIFICATION [None]
  - TONSILLITIS [None]
  - UPPER RESPIRATORY TRACT INFECTION [None]
